FAERS Safety Report 7558801-7 (Version None)
Quarter: 2011Q2

REPORT INFORMATION
  Report Type: 
  Country: None (occurrence: None)
  Receive Date: 20110621
  Receipt Date: 20110610
  Transmission Date: 20111010
  Serious: Yes (Other)
  Sender: FDA-Public Use
  Company Number: AR-AMGEN-ARGSP2011030564

PATIENT
  Age: 63 Year
  Sex: Male
  Weight: 85 kg

DRUGS (3)
  1. ENBREL [Suspect]
     Indication: RHEUMATOID ARTHRITIS
     Dosage: 50 MG, WEEKLY
     Route: 058
     Dates: start: 20060628
  2. ACETYL SALICYLIC ACID COMPOUND TAB [Concomitant]
     Dosage: UNK
  3. SIMVASTATIN [Concomitant]
     Dosage: UNK

REACTIONS (2)
  - RHEUMATOID ARTHRITIS [None]
  - CONDITION AGGRAVATED [None]
